FAERS Safety Report 4585510-9 (Version None)
Quarter: 2005Q1

REPORT INFORMATION
  Report Type: 
  Country: None (occurrence: None)
  Receive Date: 20050217
  Receipt Date: 20050130
  Transmission Date: 20050727
  Serious: Yes (Other)
  Sender: FDA-Public Use
  Company Number: PHBS2005BB01944

PATIENT
  Age: 22 Year
  Sex: Male

DRUGS (1)
  1. TRILEPTAL [Suspect]
     Indication: EPILEPSY
     Dosage: 1200 MG, BID
     Route: 048
     Dates: start: 20011211

REACTIONS (4)
  - BLOOD ALKALINE PHOSPHATASE INCREASED [None]
  - DELAYED PUBERTY [None]
  - HYPONATRAEMIA [None]
  - MENTAL RETARDATION SEVERITY UNSPECIFIED [None]
